FAERS Safety Report 14976006 (Version 1)
Quarter: 2018Q2

REPORT INFORMATION
  Report Type: Spontaneous
  Country: US (occurrence: US)
  Receive Date: 20180605
  Receipt Date: 20180605
  Transmission Date: 20180711
  Serious: Yes (Hospitalization)
  Sender: FDA-Public Use
  Company Number: US-ROCHE-2098023

PATIENT

DRUGS (9)
  1. ACTEMRA [Suspect]
     Active Substance: TOCILIZUMAB
     Indication: RHEUMATOID ARTHRITIS
     Route: 065
  2. ORENCIA [Concomitant]
     Active Substance: ABATACEPT
  3. XELJANZ [Concomitant]
     Active Substance: TOFACITINIB CITRATE
  4. PREDNISONE. [Concomitant]
     Active Substance: PREDNISONE
  5. HUMIRA [Concomitant]
     Active Substance: ADALIMUMAB
  6. PLAQUENIL [Concomitant]
     Active Substance: HYDROXYCHLOROQUINE SULFATE
  7. METHOTREXATE. [Concomitant]
     Active Substance: METHOTREXATE
  8. AZULFIDINE [Concomitant]
     Active Substance: SULFASALAZINE
  9. ENBREL [Concomitant]
     Active Substance: ETANERCEPT

REACTIONS (3)
  - Peripheral swelling [Unknown]
  - Infection [Unknown]
  - Drug ineffective [Unknown]
